FAERS Safety Report 14780951 (Version 5)
Quarter: 2018Q2

REPORT INFORMATION
  Report Type: Spontaneous
  Country: US (occurrence: US)
  Receive Date: 20180419
  Receipt Date: 20180627
  Transmission Date: 20180711
  Serious: No
  Sender: FDA-Public Use
  Company Number: US-GLAXOSMITHKLINE-US2018067042

PATIENT
  Sex: Male
  Weight: 45.35 kg

DRUGS (1)
  1. ANORO ELLIPTA [Suspect]
     Active Substance: UMECLIDINIUM BROMIDE\VILANTEROL TRIFENATATE
     Dosage: 1 DF, 1D
     Route: 055
     Dates: start: 20180402, end: 20180416

REACTIONS (2)
  - Product quality issue [Unknown]
  - Wrong technique in device usage process [Unknown]
